FAERS Safety Report 8510246-9 (Version None)
Quarter: 2012Q3

REPORT INFORMATION
  Report Type: 
  Country: None (occurrence: None)
  Receive Date: 20120713
  Receipt Date: 20120710
  Transmission Date: 20120928
  Serious: Yes (Death)
  Sender: FDA-Public Use
  Company Number: US-CELGENEUS-163-50794-12071096

PATIENT
  Sex: Male

DRUGS (3)
  1. NEUPOGEN [Concomitant]
     Dosage: 480 MICROGRAM
     Route: 065
     Dates: start: 20110120
  2. PROCRIT [Concomitant]
     Route: 065
     Dates: start: 20110120
  3. VIDAZA [Suspect]
     Indication: PANCYTOPENIA
     Dosage: 137.1429 MICROGRAM
     Route: 058
     Dates: start: 20110120

REACTIONS (1)
  - DEATH [None]
